FAERS Safety Report 18269607 (Version 3)
Quarter: 2022Q2

REPORT INFORMATION
  Report Type: Spontaneous
  Country: IT (occurrence: IT)
  Receive Date: 20200915
  Receipt Date: 20220523
  Transmission Date: 20220721
  Serious: Yes (Life-Threatening, Hospitalization, Other)
  Sender: FDA-Public Use
  Company Number: IT-SA-2020SA216020

PATIENT
  Age: 71 Year
  Sex: Female

DRUGS (6)
  1. RILUZOLE [Suspect]
     Active Substance: RILUZOLE
     Indication: Amyotrophic lateral sclerosis
     Dosage: 50 MILLIGRAM, BID (50 MG BID PER OS)
     Route: 048
  2. URSODIOL [Suspect]
     Active Substance: URSODIOL
     Indication: Cholelithiasis
     Dosage: UNK
     Route: 065
  3. ACETAMINOPHEN [Concomitant]
     Active Substance: ACETAMINOPHEN
     Indication: Haemorrhagic necrotic pancreatitis
     Dosage: UNK
  4. ACETAMINOPHEN [Concomitant]
     Active Substance: ACETAMINOPHEN
     Indication: Pancreatitis acute
  5. TRAMADOL [Concomitant]
     Active Substance: TRAMADOL
     Indication: Haemorrhagic necrotic pancreatitis
     Dosage: UNK
  6. TRAMADOL [Concomitant]
     Active Substance: TRAMADOL
     Indication: Pancreatitis acute

REACTIONS (10)
  - Pleural effusion [Recovered/Resolved]
  - Ileus [Recovered/Resolved]
  - Haemorrhagic necrotic pancreatitis [Recovered/Resolved]
  - Intra-abdominal fluid collection [Recovered/Resolved]
  - Pancreatitis acute [Recovered/Resolved]
  - Abdominal pain upper [Recovered/Resolved]
  - Pyrexia [Recovered/Resolved]
  - Nausea [Recovered/Resolved]
  - Pseudocyst [Recovered/Resolved]
  - Diarrhoea [Unknown]
